FAERS Safety Report 8123461-3 (Version None)
Quarter: 2012Q1

REPORT INFORMATION
  Report Type: 
  Country: None (occurrence: None)
  Receive Date: 20120208
  Receipt Date: 20120130
  Transmission Date: 20120608
  Serious: Yes (Death)
  Sender: FDA-Public Use
  Company Number: PHHY2010JP52334

PATIENT
  Sex: Male

DRUGS (7)
  1. BISOPROLOL FUMARATE [Concomitant]
     Dosage: 5 MG, UNK
     Route: 048
     Dates: start: 20090101
  2. PREDNISOLONE [Concomitant]
     Dosage: 5 MG, UNK
     Route: 048
     Dates: start: 20090101
  3. CINALONG [Concomitant]
     Dosage: 10 MG, UNK
     Route: 048
     Dates: start: 20090101
  4. RABEPRAZOLE SODIUM [Concomitant]
     Dosage: 10 MG, UNK
     Dates: start: 20090101
  5. TASIGNA [Suspect]
     Indication: CHRONIC MYELOID LEUKAEMIA
     Dosage: 800 MG, UNK
     Route: 048
     Dates: start: 20090716, end: 20100115
  6. USRO [Concomitant]
     Dosage: 300 MG, UNK
     Route: 048
     Dates: start: 20090101
  7. ALLOPURINOL [Concomitant]
     Dosage: 200 DF, UNK
     Route: 048
     Dates: start: 20090101

REACTIONS (2)
  - CHRONIC MYELOID LEUKAEMIA TRANSFORMATION [None]
  - BLAST CRISIS IN MYELOGENOUS LEUKAEMIA [None]
